FAERS Safety Report 10047406 (Version 2)
Quarter: 2014Q2

REPORT INFORMATION
  Report Type: Report from Study
  Country: JP (occurrence: JP)
  Receive Date: 20140331
  Receipt Date: 20140409
  Transmission Date: 20141212
  Serious: Yes (Other)
  Sender: FDA-Public Use
  Company Number: JP-ASTELLAS-2014US003195

PATIENT
  Age: 32 Year
  Sex: Male

DRUGS (12)
  1. AMBISOME [Suspect]
     Indication: FEBRILE NEUTROPENIA
     Dosage: 200 MG, UID/QD
     Route: 041
     Dates: start: 20130424, end: 20130513
  2. PARIET [Concomitant]
     Indication: PRODUCT USED FOR UNKNOWN INDICATION
     Dosage: UNK
     Route: 065
  3. BAKTAR [Concomitant]
     Indication: PRODUCT USED FOR UNKNOWN INDICATION
     Dosage: UNK
     Route: 065
     Dates: start: 20130501
  4. MAXIPIME [Concomitant]
     Indication: PRODUCT USED FOR UNKNOWN INDICATION
     Dosage: UNK
     Route: 065
     Dates: start: 20130418, end: 20130424
  5. TARGOCID [Concomitant]
     Indication: PRODUCT USED FOR UNKNOWN INDICATION
     Dosage: UNK
     Route: 065
     Dates: start: 20130419, end: 20130512
  6. MEROPEN                            /01250502/ [Concomitant]
     Indication: PRODUCT USED FOR UNKNOWN INDICATION
     Dosage: UNK
     Route: 065
     Dates: start: 20130425
  7. GRAN [Concomitant]
     Indication: PRODUCT USED FOR UNKNOWN INDICATION
     Dosage: UNK
     Route: 065
     Dates: start: 20130426, end: 20130508
  8. FUNGUARD [Concomitant]
     Indication: PRODUCT USED FOR UNKNOWN INDICATION
     Dosage: UNK
     Route: 065
     Dates: start: 20130422, end: 20130423
  9. ITRIZOLE [Concomitant]
     Indication: PRODUCT USED FOR UNKNOWN INDICATION
     Dosage: UNK
     Route: 065
     Dates: start: 20130201, end: 20130422
  10. SLOW-K [Concomitant]
     Indication: PRODUCT USED FOR UNKNOWN INDICATION
     Dosage: 600 MG, X 2 TABLES (T)
     Route: 065
     Dates: start: 20130424, end: 20130515
  11. SLOW-K [Concomitant]
     Dosage: 600 MG, X 4T
     Route: 065
     Dates: start: 20130430
  12. SLOW-K [Concomitant]
     Dosage: 600 MG, X 8T
     Route: 065
     Dates: start: 20130509

REACTIONS (2)
  - Hypokalaemia [Recovered/Resolved]
  - Liver disorder [Recovered/Resolved]
